FAERS Safety Report 5735186-X (Version None)
Quarter: 2008Q2

REPORT INFORMATION
  Report Type: 
  Country: None (occurrence: None)
  Receive Date: 20080508
  Receipt Date: 20080508
  Transmission Date: 20081010
  Serious: No
  Sender: FDA-Public Use
  Company Number: None

PATIENT
  Age: 55 Year
  Sex: Female
  Weight: 44.9061 kg

DRUGS (1)
  1. CREST PLR-HEALTH ORAL RINSE 16.9 FL OZ PROTER AND GAMBLE [Suspect]
     Indication: DENTAL DISORDER PROPHYLAXIS
     Dosage: 4 TEASPOONFULL 2 TIMES DAY
     Dates: start: 20080401, end: 20080506

REACTIONS (5)
  - DYSGEUSIA [None]
  - GLOSSODYNIA [None]
  - PHARYNGEAL ERYTHEMA [None]
  - PHARYNGOLARYNGEAL PAIN [None]
  - TONGUE DISCOLOURATION [None]
